FAERS Safety Report 15713174 (Version 1)
Quarter: 2018Q4

REPORT INFORMATION
  Report Type: Spontaneous
  Country: US (occurrence: US)
  Receive Date: 20181129
  Receipt Date: 20181129
  Transmission Date: 20190205
  Serious: No
  Sender: FDA-Public Use
  Company Number: None

PATIENT
  Age: 36 Year
  Sex: Female

DRUGS (1)
  1. ENBREL [Suspect]
     Active Substance: ETANERCEPT
     Dates: start: 201712

REACTIONS (5)
  - Arthralgia [None]
  - Musculoskeletal stiffness [None]
  - Sinusitis [None]
  - Product dose omission [None]
  - Condition aggravated [None]

NARRATIVE: CASE EVENT DATE: 20181114
